FAERS Safety Report 21752040 (Version 4)
Quarter: 2022Q4

REPORT INFORMATION
  Report Type: Spontaneous
  Country: ES (occurrence: ES)
  Receive Date: 20221220
  Receipt Date: 20221227
  Transmission Date: 20230112
  Serious: Yes (Other)
  Sender: FDA-Public Use
  Company Number: ES-ABBVIE-4242794

PATIENT
  Age: 33 Year
  Sex: Female

DRUGS (1)
  1. TESTOSTERONE [Suspect]
     Active Substance: TESTOSTERONE
     Indication: Hormone replacement therapy
     Route: 065

REACTIONS (3)
  - Suicidal behaviour [Recovered/Resolved]
  - Transgender hormonal therapy [Unknown]
  - Product use issue [Unknown]
